FAERS Safety Report 5282903-1 (Version None)
Quarter: 2007Q2

REPORT INFORMATION
  Report Type: 
  Country: None (occurrence: None)
  Receive Date: 20070402
  Receipt Date: 20070323
  Transmission Date: 20071010
  Serious: Yes (Death, Hospitalization)
  Sender: FDA-Public Use
  Company Number: AU-ELI_LILLY_AND_COMPANY-AU200702002868

PATIENT
  Age: 62 Year
  Sex: Female
  Weight: 59 kg

DRUGS (7)
  1. ALIMTA [Suspect]
     Indication: NON-SMALL CELL LUNG CANCER
     Dosage: 800 MG, UNK
     Dates: start: 20070116, end: 20070116
  2. FOLIC ACID [Concomitant]
     Indication: SUPPLEMENTATION THERAPY
     Dosage: 500 UG, UNK
     Dates: start: 20070110
  3. VITAMIN B COMPLEX CAP [Concomitant]
     Indication: SUPPLEMENTATION THERAPY
     Dosage: 1000 UG, UNK
     Route: 030
     Dates: start: 20061023, end: 20070110
  4. DEXAMETHASONE [Concomitant]
     Indication: SUPPLEMENTATION THERAPY
     Dosage: 4 MG, 2/D
     Dates: start: 20070115, end: 20070101
  5. LITHIUM CARBONATE [Concomitant]
     Dosage: 250 MG, 2/D
  6. VENLAFAXINE HCL [Concomitant]
     Dosage: 150 MG, DAILY (1/D)
  7. VALACYCLOVIR HCL [Concomitant]
     Dosage: 500 MG, DAILY (1/D)

REACTIONS (5)
  - BLEPHARITIS [None]
  - CONJUNCTIVITIS [None]
  - DIARRHOEA [None]
  - DISEASE PROGRESSION [None]
  - RASH MACULO-PAPULAR [None]
